FAERS Safety Report 24811692 (Version 1)
Quarter: 2025Q1

REPORT INFORMATION
  Report Type: Spontaneous
  Country: CN (occurrence: CN)
  Receive Date: 20250106
  Receipt Date: 20250106
  Transmission Date: 20250408
  Serious: Yes (Other)
  Sender: PFIZER
  Company Number: CN-PFIZER INC-PV202500000255

PATIENT
  Age: 70 Year
  Sex: Male
  Weight: 70 kg

DRUGS (2)
  1. TYGACIL [Suspect]
     Active Substance: TIGECYCLINE
     Indication: Pneumonia
     Dosage: 50 MG, 1X/DAY
     Route: 041
     Dates: start: 20241206, end: 20241216
  2. ISONIAZID\RIFAMPIN [Suspect]
     Active Substance: ISONIAZID\RIFAMPIN
     Indication: Anti-infective therapy
     Dosage: 2 DF, 1X/DAY
     Route: 048
     Dates: start: 20241206, end: 20241217

REACTIONS (2)
  - Erythema [Recovering/Resolving]
  - Off label use [Unknown]

NARRATIVE: CASE EVENT DATE: 20241206
